FAERS Safety Report 16581565 (Version 1)
Quarter: 2019Q3

REPORT INFORMATION
  Report Type: Spontaneous
  Country: US (occurrence: US)
  Receive Date: 20190716
  Receipt Date: 20190716
  Transmission Date: 20191004
  Serious: No
  Sender: FDA-Public Use
  Company Number: US-CHILTERN-US-2019-000482

PATIENT

DRUGS (1)
  1. RHOPRESSA [Suspect]
     Active Substance: NETARSUDIL MESYLATE
     Dosage: UNKNOWN
     Route: 047

REACTIONS (3)
  - Visual acuity reduced [Unknown]
  - Vision blurred [Unknown]
  - Cornea verticillata [Recovering/Resolving]
